FAERS Safety Report 24428380 (Version 1)
Quarter: 2024Q4

REPORT INFORMATION
  Report Type: Spontaneous
  Country: US (occurrence: None)
  Receive Date: 20241011
  Receipt Date: 20241011
  Transmission Date: 20250115
  Serious: Yes (Hospitalization)
  Sender: Public
  Company Number: None

PATIENT
  Sex: Female

DRUGS (1)
  1. NEUPOGEN [Suspect]
     Active Substance: FILGRASTIM
     Dosage: FREQUENCY : DAILY;?
     Route: 058

REACTIONS (4)
  - Haematological infection [None]
  - Catheter site infection [None]
  - Blood potassium decreased [None]
  - Gastrointestinal bacterial infection [None]
